FAERS Safety Report 7742936 (Version 29)
Quarter: 2015Q2

REPORT INFORMATION
  Report Type: Spontaneous
  Country: US (occurrence: US)
  Receive Date: 20101229
  Receipt Date: 20150629
  Transmission Date: 20150821
  Serious: Yes (Death, Other)
  Sender: FDA-Public Use
  Company Number: PHEH2010US03876

PATIENT
  Age: 58 Year
  Sex: Male

DRUGS (62)
  1. ANCEF [Concomitant]
     Active Substance: CEFAZOLIN SODIUM
     Indication: PRODUCT USED FOR UNKNOWN INDICATION
     Route: 065
  2. KANTREX [Concomitant]
     Active Substance: KANAMYCIN SULFATE
     Indication: PRODUCT USED FOR UNKNOWN INDICATION
     Route: 065
  3. NEXIUM [Concomitant]
     Active Substance: ESOMEPRAZOLE MAGNESIUM
     Dosage: UNK UKN, UNK
  4. MISOPROSTOL. [Concomitant]
     Active Substance: MISOPROSTOL
     Dosage: UNK UKN, UNK
  5. PERCOCET [Concomitant]
     Active Substance: ACETAMINOPHEN\OXYCODONE HYDROCHLORIDE
     Dosage: UNK UKN, UNK
  6. ZYVOX [Concomitant]
     Active Substance: LINEZOLID
     Indication: PRODUCT USED FOR UNKNOWN INDICATION
     Route: 065
  7. TEMAZEPAM. [Concomitant]
     Active Substance: TEMAZEPAM
     Indication: PRODUCT USED FOR UNKNOWN INDICATION
     Route: 065
  8. GENTAMYCIN [Concomitant]
     Active Substance: GENTAMICIN
     Indication: PRODUCT USED FOR UNKNOWN INDICATION
     Route: 065
  9. ZOCOR [Concomitant]
     Active Substance: SIMVASTATIN
     Dosage: UNK UKN, UNK
  10. LEXAPRO [Concomitant]
     Active Substance: ESCITALOPRAM OXALATE
     Dosage: UNK UKN, UNK
  11. EFFEXOR [Concomitant]
     Active Substance: VENLAFAXINE HYDROCHLORIDE
     Dosage: UNK UKN, UNK
  12. SENNA [Concomitant]
     Active Substance: SENNA LEAF\SENNOSIDES\SENNOSIDES A AND B
     Dosage: UNK UKN, UNK
  13. CELEBREX [Concomitant]
     Active Substance: CELECOXIB
     Dosage: 100 MG, UNK
  14. LORAZEPAM. [Concomitant]
     Active Substance: LORAZEPAM
     Dosage: 0.5 MG, UNK
  15. ALLEGRA [Concomitant]
     Active Substance: FEXOFENADINE HYDROCHLORIDE
     Dosage: UNK UKN, UNK
  16. INDOCIN [Concomitant]
     Active Substance: INDOMETHACIN\INDOMETHACIN SODIUM
     Dosage: UNK UKN, UNK
  17. CYTOTEC [Concomitant]
     Active Substance: MISOPROSTOL
     Dosage: UNK UKN, UNK
  18. COUMADINE [Concomitant]
     Active Substance: WARFARIN SODIUM
     Dosage: UNK UKN, UNK
  19. ZOFRAN [Concomitant]
     Active Substance: ONDANSETRON HYDROCHLORIDE
     Dosage: UNK UKN, UNK
  20. HYZAAR [Concomitant]
     Active Substance: HYDROCHLOROTHIAZIDE\LOSARTAN POTASSIUM
     Dosage: UNK UKN, UNK
  21. LUPRON [Concomitant]
     Active Substance: LEUPROLIDE ACETATE
     Dosage: UNK UKN, UNK
     Route: 065
  22. DOXYCYCLINE. [Concomitant]
     Active Substance: DOXYCYCLINE
     Dosage: UNK UKN, UNK
  23. ZOMETA [Suspect]
     Active Substance: ZOLEDRONIC ACID
     Indication: METASTASES TO PROSTATE
     Dosage: UNK
     Route: 065
     Dates: end: 201005
  24. VANCOMYCIN [Concomitant]
     Active Substance: VANCOMYCIN
     Indication: PRODUCT USED FOR UNKNOWN INDICATION
     Route: 065
  25. INDIGO CARMINE [Concomitant]
     Active Substance: INDIGOTINDISULFONATE SODIUM
     Dosage: UNK UKN, UNK
  26. CARVEDILOL. [Concomitant]
     Active Substance: CARVEDILOL
     Dosage: UNK UKN, UNK
  27. WARFARIN SODIUM. [Concomitant]
     Active Substance: WARFARIN SODIUM
     Dosage: UNK UKN, UNK
  28. SENOKOT [Concomitant]
     Active Substance: SENNOSIDES
     Dosage: UNK UKN, UNK
  29. REGELAN [Concomitant]
     Active Substance: CLOFIBRATE
     Dosage: UNK UKN, UNK
  30. PROZAC [Concomitant]
     Active Substance: FLUOXETINE HYDROCHLORIDE
     Dosage: 20 MG, UNK
  31. PROMETHAZINE [Concomitant]
     Active Substance: PROMETHAZINE\PROMETHAZINE HYDROCHLORIDE
     Indication: PRODUCT USED FOR UNKNOWN INDICATION
     Route: 065
  32. CLONAZEPAM. [Concomitant]
     Active Substance: CLONAZEPAM
     Indication: PRODUCT USED FOR UNKNOWN INDICATION
     Route: 065
  33. MARCAINE [Concomitant]
     Active Substance: BUPIVACAINE HYDROCHLORIDE
     Dosage: UNK UKN, UNK
  34. FLUNISOLIDE. [Concomitant]
     Active Substance: FLUNISOLIDE
     Dosage: UNK UKN, UNK
  35. CYMBALTA [Concomitant]
     Active Substance: DULOXETINE HYDROCHLORIDE
     Dosage: UNK UKN, UNK
  36. MORPHINE [Concomitant]
     Active Substance: MORPHINE
     Dosage: UNK UKN, UNK
  37. PROSCAR [Concomitant]
     Active Substance: FINASTERIDE
     Dosage: 5 MG, UNK
  38. AVODART [Concomitant]
     Active Substance: DUTASTERIDE
     Dosage: UNK UKN, UNK
  39. DOSTINEX [Concomitant]
     Active Substance: CABERGOLINE
     Dosage: UNK UKN, UNK
  40. BACITRACIN. [Concomitant]
     Active Substance: BACITRACIN
     Indication: PRODUCT USED FOR UNKNOWN INDICATION
     Route: 065
  41. KETOCONAZOLE. [Concomitant]
     Active Substance: KETOCONAZOLE
     Dosage: UNK UKN, UNK
  42. PRILOSEC [Concomitant]
     Active Substance: OMEPRAZOLE MAGNESIUM
     Dosage: UNK UKN, UNK
  43. ANTIVERT [Concomitant]
     Active Substance: MECLIZINE HYDROCHLORIDE
     Dosage: UNK UKN, UNK
  44. CHEMOTHERAPEUTICS [Concomitant]
     Active Substance: UNSPECIFIED INGREDIENT
     Dosage: UNK UKN, UNK
  45. HYTRIN [Concomitant]
     Active Substance: TERAZOSIN HYDROCHLORIDE
     Dosage: UNK UKN, UNK
  46. METHADONE HYDROCHLORIDE. [Concomitant]
     Active Substance: METHADONE HYDROCHLORIDE
     Dosage: UNK UKN, UNK
  47. ESTRADIOL. [Concomitant]
     Active Substance: ESTRADIOL
     Dosage: 0.8 MG, UNK
  48. VIVELLE [Concomitant]
     Active Substance: ESTRADIOL
     Dosage: UNK UKN, UNK
  49. AREDIA [Suspect]
     Active Substance: PAMIDRONATE DISODIUM
     Indication: METASTASES TO PROSTATE
     Dosage: 90 MG, QMO
     Route: 042
  50. ZOMETA [Suspect]
     Active Substance: ZOLEDRONIC ACID
     Indication: METASTASES TO BONE
     Dosage: 4 MG, QMO
     Route: 041
     Dates: start: 20000530, end: 20080528
  51. NEOSPORIN [Concomitant]
     Active Substance: BACITRACIN ZINC\NEOMYCIN SULFATE\POLYMYXIN B SULFATE
     Indication: PRODUCT USED FOR UNKNOWN INDICATION
     Route: 065
  52. HEPARIN [Concomitant]
     Active Substance: HEPARIN SODIUM
     Dosage: UNK UKN, UNK
  53. METHADONE [Concomitant]
     Active Substance: METHADONE HYDROCHLORIDE
     Dosage: UNK UKN, UNK
  54. PEPCID [Concomitant]
     Active Substance: FAMOTIDINE
     Dosage: UNK UKN, UNK
  55. VERSED [Concomitant]
     Active Substance: MIDAZOLAM HYDROCHLORIDE
     Dosage: UNK UKN, UNK
  56. VYTORIN [Concomitant]
     Active Substance: EZETIMIBE\SIMVASTATIN
     Dosage: UNK UKN, UNK
  57. OXYCODONE [Concomitant]
     Active Substance: OXYCODONE
     Indication: PRODUCT USED FOR UNKNOWN INDICATION
     Route: 065
  58. HYDROCORTISONE. [Concomitant]
     Active Substance: HYDROCORTISONE
     Dosage: UNK UKN, UNK
  59. SOMA [Concomitant]
     Active Substance: CARISOPRODOL
     Dosage: UNK UKN, UNK
  60. MOTRIN [Concomitant]
     Active Substance: IBUPROFEN
     Dosage: 800 MG, UNK
  61. TAXOTERE [Concomitant]
     Active Substance: DOCETAXEL
     Dosage: UNK UKN, UNK
  62. CASODEX [Concomitant]
     Active Substance: BICALUTAMIDE
     Dosage: UNK UKN, UNK

REACTIONS (176)
  - Pain [Unknown]
  - Oral infection [Unknown]
  - Swelling [Unknown]
  - Loose tooth [Unknown]
  - Cerebrovascular accident [Unknown]
  - Otitis media [Unknown]
  - Confusional state [Unknown]
  - Pain in extremity [Unknown]
  - Brachial plexopathy [Unknown]
  - Insomnia [Unknown]
  - Rectal haemorrhage [Unknown]
  - Gynaecomastia [Unknown]
  - Post laminectomy syndrome [Unknown]
  - Fatigue [Unknown]
  - Dysphonia [Unknown]
  - Salivary gland pain [Unknown]
  - Lung infiltration [Unknown]
  - Osteosclerosis [Unknown]
  - Osteoporosis [Unknown]
  - Dysstasia [Unknown]
  - Deformity [Unknown]
  - Pain in jaw [Unknown]
  - Neuritis [Unknown]
  - Ventricular hypertrophy [Unknown]
  - Amnesia [Unknown]
  - Back pain [Unknown]
  - Arthralgia [Unknown]
  - Urinary retention [Unknown]
  - Phimosis [Unknown]
  - Contusion [Unknown]
  - Pulmonary mass [Unknown]
  - Cerebral infarction [Unknown]
  - Cerebral artery occlusion [Unknown]
  - Bone pain [Unknown]
  - Spinal osteoarthritis [Unknown]
  - Mitral valve sclerosis [Unknown]
  - Cardiomegaly [Unknown]
  - Nervousness [Unknown]
  - Pyrexia [Unknown]
  - Cough [Unknown]
  - Electrolyte imbalance [Unknown]
  - Aortic stenosis [Unknown]
  - Bone fragmentation [Unknown]
  - Neck pain [Unknown]
  - Scar [Unknown]
  - Type 2 diabetes mellitus [Recovered/Resolved]
  - Anaemia [Unknown]
  - Disability [Unknown]
  - Erythema [Unknown]
  - Purulent discharge [Unknown]
  - Hypertension [Unknown]
  - Spinal cord compression [Unknown]
  - Bone loss [Unknown]
  - Atrial fibrillation [Unknown]
  - Thrombocytopenia [Unknown]
  - Burns third degree [Unknown]
  - Femur fracture [Unknown]
  - Disorientation [Unknown]
  - Chest pain [Unknown]
  - Haematochezia [Unknown]
  - Arthritis [Unknown]
  - Nail disorder [Unknown]
  - Neuralgia [Unknown]
  - Gingival abscess [Unknown]
  - Myelopathy [Unknown]
  - Snoring [Unknown]
  - Loss of consciousness [Unknown]
  - Febrile neutropenia [Unknown]
  - Thalassaemia [Unknown]
  - Tenderness [Unknown]
  - Blood triglycerides increased [Unknown]
  - Musculoskeletal discomfort [Unknown]
  - Neuropathy peripheral [Unknown]
  - Diverticulum [Unknown]
  - Urobilinogen urine increased [Unknown]
  - Myofascial pain syndrome [Unknown]
  - Left ventricular dysfunction [Unknown]
  - Sepsis [Unknown]
  - Apathy [Unknown]
  - Noninfective gingivitis [Unknown]
  - Headache [Unknown]
  - Nausea [Unknown]
  - Aggression [Unknown]
  - Cardiac septal hypertrophy [Unknown]
  - Visual impairment [Unknown]
  - Movement disorder [Unknown]
  - Diarrhoea [Unknown]
  - Osteonecrosis of jaw [Unknown]
  - Cellulitis [Unknown]
  - Pathological fracture [Unknown]
  - Hip fracture [Unknown]
  - Haemorrhagic anaemia [Unknown]
  - Tricuspid valve incompetence [Unknown]
  - Cataract [Unknown]
  - Dyspnoea [Unknown]
  - Hyperlipidaemia [Unknown]
  - Agitation [Unknown]
  - Transient ischaemic attack [Unknown]
  - Dysphagia [Unknown]
  - Balance disorder [Unknown]
  - Hip deformity [Unknown]
  - Wound [Unknown]
  - Upper respiratory tract infection [Unknown]
  - Hypoaesthesia oral [Unknown]
  - Myalgia [Unknown]
  - Arthropathy [Unknown]
  - Malaise [Unknown]
  - Chromaturia [Unknown]
  - Memory impairment [Unknown]
  - Dysgeusia [Unknown]
  - Mean cell volume decreased [Unknown]
  - Osteomyelitis [Unknown]
  - Exposed bone in jaw [Unknown]
  - Lumbar radiculopathy [Unknown]
  - Lumbosacral plexus lesion [Unknown]
  - Pneumonia [Recovered/Resolved]
  - Urinary tract infection [Unknown]
  - Pulmonary hypertension [Unknown]
  - Dehydration [Unknown]
  - Osteonecrosis [Unknown]
  - Nocturia [Unknown]
  - Restless legs syndrome [Unknown]
  - Muscular weakness [Unknown]
  - Claustrophobia [Unknown]
  - Suicidal ideation [Unknown]
  - Death [Fatal]
  - Anxiety [Unknown]
  - Anhedonia [Unknown]
  - Mitral valve incompetence [Unknown]
  - Dizziness [Unknown]
  - Rotator cuff syndrome [Unknown]
  - Dental caries [Unknown]
  - Cervical radiculopathy [Unknown]
  - Metabolic encephalopathy [Unknown]
  - Gastrooesophageal reflux disease [Unknown]
  - Affective disorder [Unknown]
  - Paraesthesia [Unknown]
  - Nitrite urine present [Unknown]
  - Decubitus ulcer [Unknown]
  - Aortic valve sclerosis [Unknown]
  - Left atrial dilatation [Unknown]
  - Extrapyramidal disorder [Unknown]
  - Osteitis [Unknown]
  - Abdominal pain [Unknown]
  - Micturition urgency [Unknown]
  - Kyphosis [Unknown]
  - Nasal congestion [Unknown]
  - Gingival bleeding [Unknown]
  - Tooth fracture [Unknown]
  - Blood cholesterol increased [Unknown]
  - Musculoskeletal stiffness [Unknown]
  - Alopecia [Unknown]
  - Musculoskeletal pain [Unknown]
  - Muscle spasms [Unknown]
  - Dermal cyst [Unknown]
  - Spinal pain [Unknown]
  - Constipation [Unknown]
  - Asthenia [Unknown]
  - Toothache [Recovered/Resolved]
  - Tobacco abuse [Unknown]
  - Sleep apnoea syndrome [Unknown]
  - Toxic encephalopathy [Unknown]
  - Aortic arteriosclerosis [Unknown]
  - Glucose tolerance impaired [Unknown]
  - Hypoaesthesia [Unknown]
  - Prostate cancer metastatic [Unknown]
  - Depression [Unknown]
  - Seizure [Unknown]
  - Bone fistula [Unknown]
  - Microcytosis [Unknown]
  - Neutropenia [Unknown]
  - Joint stiffness [Unknown]
  - Odynophagia [Unknown]
  - Coronary artery disease [Unknown]
  - Ejection fraction decreased [Unknown]
  - Osteoarthritis [Unknown]

NARRATIVE: CASE EVENT DATE: 20010115
